FAERS Safety Report 7931114-7 (Version None)
Quarter: 2011Q4

REPORT INFORMATION
  Report Type: 
  Country: None (occurrence: None)
  Receive Date: 20111121
  Receipt Date: 20111118
  Transmission Date: 20120403
  Serious: Yes (Other)
  Sender: FDA-Public Use
  Company Number: US-PFIZER INC-2011283292

PATIENT
  Sex: Female

DRUGS (1)
  1. LYRICA [Suspect]
     Indication: MUSCULOSKELETAL DISCOMFORT
     Dosage: UNK
     Route: 048

REACTIONS (3)
  - PSYCHOTIC DISORDER [None]
  - ABNORMAL BEHAVIOUR [None]
  - MOOD SWINGS [None]
